FAERS Safety Report 25734177 (Version 2)
Quarter: 2025Q3

REPORT INFORMATION
  Report Type: Spontaneous
  Country: US (occurrence: US)
  Receive Date: 20250828
  Receipt Date: 20250912
  Transmission Date: 20251021
  Serious: Yes (Death, Life-Threatening, Hospitalization)
  Sender: TEVA
  Company Number: US-TEVA-VS-3364399

PATIENT
  Age: 48 Year
  Sex: Female

DRUGS (2)
  1. BUPROPION [Suspect]
     Active Substance: BUPROPION
     Indication: Depression
     Route: 048
  2. PROPRANOLOL [Suspect]
     Active Substance: PROPRANOLOL HYDROCHLORIDE
     Indication: Anxiety
     Route: 065

REACTIONS (8)
  - Cardiotoxicity [Unknown]
  - Intentional overdose [Fatal]
  - Ventricular tachycardia [Unknown]
  - Cardiogenic shock [Fatal]
  - Hypotension [Unknown]
  - Intentional product misuse [Unknown]
  - Electrocardiogram QRS complex prolonged [Unknown]
  - Metabolic acidosis [Unknown]
